APPROVED DRUG PRODUCT: TRIAMCINOLONE DIACETATE
Active Ingredient: TRIAMCINOLONE DIACETATE
Strength: 25MG/ML
Dosage Form/Route: INJECTABLE;INJECTION
Application: A085122 | Product #001
Applicant: EPIC PHARMA LLC
Approved: Approved Prior to Jan 1, 1982 | RLD: No | RS: No | Type: DISCN